FAERS Safety Report 25476334 (Version 1)
Quarter: 2025Q2

REPORT INFORMATION
  Report Type: Spontaneous
  Country: ES (occurrence: ES)
  Receive Date: 20250625
  Receipt Date: 20250625
  Transmission Date: 20250717
  Serious: Yes (Hospitalization, Other)
  Sender: NOVO NORDISK
  Company Number: ES-NOVOPROD-1459995

PATIENT
  Age: 14 Year
  Sex: Female

DRUGS (1)
  1. WEGOVY [Suspect]
     Active Substance: SEMAGLUTIDE
     Indication: Obesity

REACTIONS (4)
  - Coma [Unknown]
  - Hydrocephalus [Unknown]
  - Headache [Unknown]
  - Vomiting [Unknown]
